FAERS Safety Report 4684419-X (Version None)
Quarter: 2005Q2

REPORT INFORMATION
  Report Type: 
  Country: None (occurrence: None)
  Receive Date: 20050531
  Receipt Date: 20050208
  Transmission Date: 20051028
  Serious: Yes (Other)
  Sender: FDA-Public Use
  Company Number: USA040773147

PATIENT
  Age: 6 Year
  Sex: Male
  Weight: 17 kg

DRUGS (4)
  1. STRATTERA [Suspect]
     Indication: ATTENTION DEFICIT/HYPERACTIVITY DISORDER
     Dosage: 25 MG AT BEDTIME
     Dates: start: 20040130
  2. ZYPREXA [Suspect]
     Indication: ABNORMAL BEHAVIOUR
     Dosage: 5 MG DAY
  3. METADATE CD [Concomitant]
  4. DDAVP (DESMOPRESSIN ACETATE) [Concomitant]

REACTIONS (8)
  - EYE PAIN [None]
  - HEADACHE [None]
  - MYDRIASIS [None]
  - OBSESSIVE-COMPULSIVE DISORDER [None]
  - OPHTHALMOLOGICAL EXAMINATION ABNORMAL [None]
  - OPTIC ATROPHY [None]
  - PHOTOPHOBIA [None]
  - TARDIVE DYSKINESIA [None]
